FAERS Safety Report 7414820-2 (Version None)
Quarter: 2011Q2

REPORT INFORMATION
  Report Type: 
  Country: None (occurrence: None)
  Receive Date: 20110405
  Receipt Date: 20110328
  Transmission Date: 20111010
  Serious: Yes (Hospitalization)
  Sender: FDA-Public Use
  Company Number: 1000019158

PATIENT
  Age: 71 Year
  Sex: Male

DRUGS (15)
  1. PLAVIX [Concomitant]
  2. LYRICA (PREGABALIN)(PREGAEALIN) [Concomitant]
  3. VITAMIN C(VITAMIN C) (VITAMIN C) [Concomitant]
  4. QUINAPRIL (QUINAPRIL) (QUINAPRIL) [Concomitant]
  5. ALPRAZOLAM [Concomitant]
  6. INSPRA [Concomitant]
  7. ZETIA [Concomitant]
  8. ALLOPURINOL [Concomitant]
  9. BYSTOLIC [Suspect]
     Dosage: 10 MG (10 MG, L IN 1 D), ORAL
     Route: 048
     Dates: start: 20110302, end: 20110303
  10. NIASPAN (NICOTINIC ACID) (NICOTINIC ACID) [Concomitant]
  11. FUROSEMIDE [Concomitant]
  12. ASPIRIN (ACETYLSALICYLIC ACID) (TABLETS) (ACETYLSALICYLIC ACID) [Concomitant]
  13. LIPITOR [Concomitant]
  14. PROTONIX [Concomitant]
  15. KLOR-CON (POTASSIUM CHLORIDE) (POTASSIUM CHLORIDE) [Concomitant]

REACTIONS (4)
  - SICK SINUS SYNDROME [None]
  - SYNCOPE [None]
  - LABILE BLOOD PRESSURE [None]
  - BRADYCARDIA [None]
